FAERS Safety Report 13587188 (Version 7)
Quarter: 2021Q2

REPORT INFORMATION
  Report Type: Spontaneous
  Country: FR (occurrence: FR)
  Receive Date: 20170526
  Receipt Date: 20210608
  Transmission Date: 20210716
  Serious: Yes (Hospitalization, Other)
  Sender: FDA-Public Use
  Company Number: PHHY2017FR073060

PATIENT
  Age: 61 Year
  Sex: Female

DRUGS (15)
  1. AMOXICILLIN. [Suspect]
     Active Substance: AMOXICILLIN
     Indication: GASTRIC ULCER
  2. CLARITHROMYCIN. [Suspect]
     Active Substance: CLARITHROMYCIN
     Indication: HELICOBACTER INFECTION
     Dosage: 500 MG, BID
     Route: 065
     Dates: start: 201206, end: 2012
  3. OMEPRAZOLE. [Concomitant]
     Active Substance: OMEPRAZOLE
     Indication: HELICOBACTER INFECTION
     Dosage: 20 MG, QD
     Route: 065
  4. OMEPRAZOLE. [Concomitant]
     Active Substance: OMEPRAZOLE
     Dosage: 20 MG,BID
     Route: 065
     Dates: start: 201206
  5. CLARITHROMYCIN. [Suspect]
     Active Substance: CLARITHROMYCIN
     Indication: PEPTIC ULCER
  6. AMOXICILLIN. [Suspect]
     Active Substance: AMOXICILLIN
     Indication: PEPTIC ULCER
     Dosage: 2 G, QD (TRIPLE THERAPY)
     Route: 065
     Dates: start: 201206
  7. METRONIDAZOLE. [Suspect]
     Active Substance: METRONIDAZOLE
     Indication: GASTRIC ULCER
     Dosage: 500 MG,TID
     Route: 065
     Dates: start: 201206, end: 2012
  8. METRONIDAZOLE. [Suspect]
     Active Substance: METRONIDAZOLE
     Indication: HELICOBACTER INFECTION
     Dosage: 1500 MG, QD (TRIPLE THERAPY)
     Route: 065
     Dates: start: 201206
  9. AMOXICILLIN. [Suspect]
     Active Substance: AMOXICILLIN
     Indication: PEPTIC ULCER HELICOBACTER
  10. METRONIDAZOLE. [Suspect]
     Active Substance: METRONIDAZOLE
     Indication: PEPTIC ULCER
  11. OMEPRAZOLE. [Concomitant]
     Active Substance: OMEPRAZOLE
     Dosage: 40 MG, QD
     Route: 065
  12. CLARITHROMYCIN. [Suspect]
     Active Substance: CLARITHROMYCIN
     Indication: GASTRIC ULCER
     Dosage: 1000 MG, QD (TRIPLE THERAPY)
     Route: 065
     Dates: start: 201206
  13. CLARITHROMYCIN. [Suspect]
     Active Substance: CLARITHROMYCIN
     Indication: PEPTIC ULCER HELICOBACTER
  14. AMOXICILLIN. [Suspect]
     Active Substance: AMOXICILLIN
     Indication: HELICOBACTER INFECTION
     Dosage: 1 G, BID
     Route: 065
     Dates: start: 201206, end: 2012
  15. METRONIDAZOLE. [Suspect]
     Active Substance: METRONIDAZOLE
     Indication: PEPTIC ULCER HELICOBACTER

REACTIONS (3)
  - Mania [Recovered/Resolved]
  - Product use in unapproved indication [Unknown]
  - Bipolar disorder [Recovered/Resolved]

NARRATIVE: CASE EVENT DATE: 201206
